FAERS Safety Report 18133164 (Version 1)
Quarter: 2020Q3

REPORT INFORMATION
  Report Type: Spontaneous
  Country: CN (occurrence: CN)
  Receive Date: 20200811
  Receipt Date: 20200811
  Transmission Date: 20201103
  Serious: Yes (Other)
  Sender: FDA-Public Use
  Company Number: CN-JNJFOC-20200803548

PATIENT
  Age: 45 Year
  Sex: Male
  Weight: 65 kg

DRUGS (7)
  1. FUROSEMIDE. [Concomitant]
     Active Substance: FUROSEMIDE
     Indication: POLYURIA
  2. RISPERDAL [Suspect]
     Active Substance: RISPERIDONE
     Dates: start: 20200706, end: 20200716
  3. RISPERDAL [Suspect]
     Active Substance: RISPERIDONE
     Dates: start: 20200630, end: 20200706
  4. RISPERDAL [Suspect]
     Active Substance: RISPERIDONE
     Indication: PSYCHIATRIC SYMPTOM
     Dates: start: 20200624, end: 20200629
  5. RISPERDAL [Suspect]
     Active Substance: RISPERIDONE
     Dates: start: 20200706, end: 20200716
  6. RISPERDAL [Suspect]
     Active Substance: RISPERIDONE
     Dates: start: 20200717, end: 20200718
  7. RISPERDAL [Suspect]
     Active Substance: RISPERIDONE
     Indication: PSYCHIATRIC SYMPTOM
     Route: 048
     Dates: start: 20200718, end: 20200727

REACTIONS (1)
  - Myxoedema [Recovering/Resolving]

NARRATIVE: CASE EVENT DATE: 20200727
